FAERS Safety Report 23403993 (Version 1)
Quarter: 2024Q1

REPORT INFORMATION
  Report Type: Other
  Country: US (occurrence: None)
  Receive Date: 20240116
  Receipt Date: 20240116
  Transmission Date: 20240410
  Serious: No
  Sender: FDA-Public Use
  Company Number: US-ROCHE-3490907

PATIENT
  Age: 57 Year
  Sex: Female
  Weight: 55.388 kg

DRUGS (5)
  1. OCREVUS [Suspect]
     Active Substance: OCRELIZUMAB
     Indication: Relapsing-remitting multiple sclerosis
     Route: 042
     Dates: start: 201708
  2. SYNTHROID [Concomitant]
     Active Substance: LEVOTHYROXINE SODIUM
     Route: 048
     Dates: start: 199312
  3. EZETIMIBE [Concomitant]
     Active Substance: EZETIMIBE
     Route: 048
  4. ASPIRIN [Concomitant]
     Active Substance: ASPIRIN
     Route: 048
     Dates: start: 202212
  5. NITROFURANTOIN [Concomitant]
     Active Substance: NITROFURANTOIN
     Route: 048

REACTIONS (2)
  - COVID-19 [Not Recovered/Not Resolved]
  - Cystitis [Unknown]

NARRATIVE: CASE EVENT DATE: 20200701
